FAERS Safety Report 10909255 (Version 1)
Quarter: 2015Q1

REPORT INFORMATION
  Report Type: Spontaneous
  Country: US (occurrence: US)
  Receive Date: 20150312
  Receipt Date: 20150312
  Transmission Date: 20150721
  Serious: No
  Sender: FDA-Public Use
  Company Number: US-SA-2014SA030482

PATIENT
  Age: 88 Year
  Sex: Female

DRUGS (1)
  1. NASACORT ALLERGY 24HR [Suspect]
     Active Substance: TRIAMCINOLONE ACETONIDE
     Indication: HYPERSENSITIVITY
     Dosage: 2 SPRAYS PER DAY
     Route: 065
     Dates: start: 20140303

REACTIONS (3)
  - Lacrimation increased [Unknown]
  - Drug ineffective [Unknown]
  - Pharyngeal oedema [Unknown]
